FAERS Safety Report 7020902-X (Version None)
Quarter: 2010Q3

REPORT INFORMATION
  Report Type: 
  Country: None (occurrence: None)
  Receive Date: 20100929
  Receipt Date: 20100921
  Transmission Date: 20110219
  Serious: Yes (Other)
  Sender: FDA-Public Use
  Company Number: GB-SANOFI-AVENTIS-2010SA056839

PATIENT
  Age: 64 Year
  Sex: Female
  Weight: 85 kg

DRUGS (4)
  1. LANTUS [Suspect]
     Indication: TYPE 2 DIABETES MELLITUS
     Route: 058
     Dates: start: 20091101
  2. PIOGLITAZONE [Suspect]
     Indication: TYPE 2 DIABETES MELLITUS
     Route: 048
     Dates: start: 20100415, end: 20100430
  3. PIOGLITAZONE [Suspect]
     Route: 048
  4. NOVORAPID [Concomitant]
     Dosage: 18-8-9
     Route: 058
     Dates: start: 20091201

REACTIONS (2)
  - CHLOROPSIA [None]
  - HYPOGLYCAEMIA [None]
